FAERS Safety Report 10256219 (Version 2)
Quarter: 2014Q2

REPORT INFORMATION
  Report Type: Spontaneous
  Country: GB (occurrence: GB)
  Receive Date: 20140624
  Receipt Date: 20140624
  Transmission Date: 20141212
  Serious: Yes (Other)
  Sender: FDA-Public Use
  Company Number: GB-ASTRAZENECA-2014SE40909

PATIENT
  Age: 70 Year
  Sex: Female

DRUGS (4)
  1. PULMICORT TURBOHALER [Suspect]
     Indication: ASTHMA
     Route: 055
     Dates: start: 2008
  2. PULMICORT TURBOHALER [Suspect]
     Indication: ASTHMA
     Route: 055
  3. SALBUTAMOL [Concomitant]
     Indication: ASTHMA
     Route: 055
     Dates: start: 20100317
  4. CITALOPRAM [Concomitant]
     Indication: DEPRESSION
     Route: 048
     Dates: start: 20130416

REACTIONS (1)
  - Circumstance or information capable of leading to medication error [Recovered/Resolved]
